FAERS Safety Report 4416919-1 (Version None)
Quarter: 2004Q3

REPORT INFORMATION
  Report Type: 
  Country: None (occurrence: None)
  Receive Date: 20040802
  Receipt Date: 20040722
  Transmission Date: 20050211
  Serious: Yes (Other)
  Sender: FDA-Public Use
  Company Number: 139392USA

PATIENT
  Age: 40 Year
  Sex: Male
  Weight: 77.1115 kg

DRUGS (5)
  1. COPAXONE [Suspect]
     Indication: MULTIPLE SCLEROSIS
     Dosage: 20 MILLIGRAM QD SUBCUTANEOUS
     Route: 058
     Dates: start: 20001228
  2. BACLOFEN [Concomitant]
  3. NEURONTIN [Concomitant]
  4. CLONAZEPAM [Concomitant]
  5. MINOCYCLINE HCL [Concomitant]

REACTIONS (2)
  - OPTIC NEURITIS [None]
  - REFUSAL OF TREATMENT BY PATIENT [None]
